FAERS Safety Report 8430007-9 (Version None)
Quarter: 2012Q2

REPORT INFORMATION
  Report Type: 
  Country: None (occurrence: None)
  Receive Date: 20120612
  Receipt Date: 20120601
  Transmission Date: 20120825
  Serious: Yes (Hospitalization)
  Sender: FDA-Public Use
  Company Number: US-ROCHE-1064693

PATIENT
  Sex: Female

DRUGS (3)
  1. PEGASYS [Suspect]
     Indication: HEPATITIS C
     Route: 058
     Dates: start: 20120424
  2. RIBAVIRIN [Suspect]
     Indication: HEPATITIS C
     Route: 048
     Dates: start: 20120424
  3. TELAPREVIR [Suspect]
     Indication: HEPATITIS C
     Dates: start: 20120424

REACTIONS (10)
  - ABDOMINAL DISTENSION [None]
  - OEDEMA PERIPHERAL [None]
  - FATIGUE [None]
  - INSOMNIA [None]
  - HAEMATURIA [None]
  - DYSPNOEA [None]
  - URINARY TRACT INFECTION [None]
  - PLATELET COUNT DECREASED [None]
  - SWELLING [None]
  - WHITE BLOOD CELL COUNT DECREASED [None]
